FAERS Safety Report 18802527 (Version 2)
Quarter: 2021Q1

REPORT INFORMATION
  Report Type: Spontaneous
  Country: US (occurrence: US)
  Receive Date: 20210129
  Receipt Date: 20210316
  Transmission Date: 20210419
  Serious: No
  Sender: FDA-Public Use
  Company Number: US-JNJFOC-20210134284

PATIENT
  Age: 38 Year
  Sex: Female
  Weight: 56.75 kg

DRUGS (3)
  1. WOMENS ROGAINE UNSCENTED [Suspect]
     Active Substance: MINOXIDIL
     Indication: ALOPECIA
     Dosage: THE CORRECT DOSE. ONCE A DAY.
     Route: 061
     Dates: start: 20210101, end: 202101
  2. WOMENS ROGAINE UNSCENTED [Suspect]
     Active Substance: MINOXIDIL
     Dosage: THE CORRECT DOSE. ONCE A DAY.
     Route: 061
     Dates: start: 20210110
  3. SPIRONOLACTONE. [Concomitant]
     Active Substance: SPIRONOLACTONE
     Indication: ALOPECIA
     Route: 065
     Dates: start: 20200802

REACTIONS (3)
  - Application site pain [Recovering/Resolving]
  - Application site exfoliation [Recovering/Resolving]
  - Application site irritation [Recovering/Resolving]

NARRATIVE: CASE EVENT DATE: 20210101
